FAERS Safety Report 6420842-0 (Version None)
Quarter: 2009Q4

REPORT INFORMATION
  Report Type: 
  Country: None (occurrence: None)
  Receive Date: 20091030
  Receipt Date: 20091029
  Transmission Date: 20100525
  Serious: Yes (Hospitalization)
  Sender: FDA-Public Use
  Company Number: FR-WYE-G04438009

PATIENT
  Sex: Female

DRUGS (8)
  1. ADVIL [Suspect]
     Indication: HEADACHE
     Dosage: UNKNOWN
     Route: 048
     Dates: start: 20090803, end: 20090807
  2. ADVIL [Suspect]
     Indication: ODYNOPHAGIA
  3. TEGRETOL [Suspect]
     Indication: DEPRESSION
     Dosage: UNKNOWN
     Route: 048
     Dates: start: 20090730, end: 20090821
  4. DOLIPRANE [Concomitant]
     Indication: PYREXIA
     Dosage: UNKNOWN
     Route: 048
     Dates: start: 20090807
  5. ZYPREXA [Suspect]
     Indication: DEPRESSION
     Dosage: UNKNOWN
     Route: 048
     Dates: start: 20080301, end: 20090730
  6. AUGMENTIN [Suspect]
     Indication: TONSILLITIS
     Dosage: UNKNOWN
     Route: 048
     Dates: start: 20090807, end: 20090810
  7. SERESTA [Suspect]
     Indication: DEPRESSION
     Dosage: UNKNOWN
     Route: 048
     Dates: start: 20090730, end: 20090821
  8. XANAX [Suspect]
     Indication: DEPRESSION
     Dosage: UNKNOWN
     Route: 048
     Dates: start: 20080301, end: 20090730

REACTIONS (13)
  - ALANINE AMINOTRANSFERASE INCREASED [None]
  - BLOOD CREATINE PHOSPHOKINASE INCREASED [None]
  - BLOOD LACTATE DEHYDROGENASE INCREASED [None]
  - DRUG RASH WITH EOSINOPHILIA AND SYSTEMIC SYMPTOMS [None]
  - ECZEMA [None]
  - EOSINOPHILIA [None]
  - GENERALISED ERYTHEMA [None]
  - HYPOTENSION [None]
  - LEUKOCYTOSIS [None]
  - MYALGIA [None]
  - RALES [None]
  - RASH VESICULAR [None]
  - SKIN EXFOLIATION [None]
